FAERS Safety Report 6152898-7 (Version None)
Quarter: 2009Q2

REPORT INFORMATION
  Report Type: 
  Country: None (occurrence: None)
  Receive Date: 20090413
  Receipt Date: 20090409
  Transmission Date: 20091009
  Serious: Yes (Death, Hospitalization)
  Sender: FDA-Public Use
  Company Number: PHHY2009JP11042

PATIENT
  Sex: Male
  Weight: 58 kg

DRUGS (8)
  1. DIOVAN [Suspect]
     Indication: HYPERTENSION
     Dosage: 30 MG DAILY
     Route: 048
     Dates: start: 20080916
  2. GASTER D [Concomitant]
     Dosage: 20 MG
     Route: 048
     Dates: start: 20050915
  3. SINLESTAL [Concomitant]
     Dosage: 250 MG
     Route: 048
     Dates: start: 20001026
  4. ASPIRIN [Concomitant]
     Dosage: 100 MG
     Route: 048
     Dates: start: 20030417
  5. ZYLORIC ^FRESENIUS^ [Concomitant]
     Dosage: 100 MG
     Route: 048
  6. SERMION [Concomitant]
     Dosage: 15 MG
     Route: 048
     Dates: start: 20071228
  7. EPADEL [Concomitant]
     Dosage: 300 MG
     Route: 048
     Dates: start: 20031009
  8. BASEN [Concomitant]
     Dosage: 0.3 MG
     Route: 048
     Dates: start: 20080627

REACTIONS (3)
  - BLOOD PRESSURE DIASTOLIC DECREASED [None]
  - DEATH [None]
  - FALL [None]
